FAERS Safety Report 19976637 (Version 1)
Quarter: 2021Q4

REPORT INFORMATION
  Report Type: Spontaneous
  Country: US (occurrence: US)
  Receive Date: 20211021
  Receipt Date: 20211021
  Transmission Date: 20220303
  Serious: No
  Sender: FDA-Public Use
  Company Number: US-GE HEALTHCARE LIFE SCIENCES-2021CSU004158

PATIENT
  Age: 62 Year
  Sex: Female

DRUGS (6)
  1. OMNIPAQUE [Suspect]
     Active Substance: IOHEXOL
     Indication: Angiogram
     Dosage: 100 ML, SINGLE
     Route: 042
     Dates: start: 20210820, end: 20210820
  2. OMNIPAQUE [Suspect]
     Active Substance: IOHEXOL
     Indication: Dyspnoea
  3. OMNIPAQUE [Suspect]
     Active Substance: IOHEXOL
     Indication: Cough
  4. OMNIPAQUE [Suspect]
     Active Substance: IOHEXOL
     Indication: Back pain
  5. OMNIPAQUE [Suspect]
     Active Substance: IOHEXOL
     Indication: Chest discomfort
  6. OMNIPAQUE [Suspect]
     Active Substance: IOHEXOL
     Indication: Pulmonary embolism

REACTIONS (1)
  - Pruritus [Unknown]

NARRATIVE: CASE EVENT DATE: 20210820
